FAERS Safety Report 8360610-6 (Version None)
Quarter: 2012Q2

REPORT INFORMATION
  Report Type: 
  Country: None (occurrence: None)
  Receive Date: 20120514
  Receipt Date: 20120514
  Transmission Date: 20120825
  Serious: No
  Sender: FDA-Public Use
  Company Number: None

PATIENT
  Sex: Female
  Weight: 28.5766 kg

DRUGS (2)
  1. METHYLPHENIDATE [Suspect]
     Indication: ATTENTION DEFICIT/HYPERACTIVITY DISORDER
     Dosage: 18 MG TABLET DAILY PO
     Route: 048
     Dates: start: 20120301, end: 20120401
  2. METHYLPHENIDATE [Suspect]
     Indication: ATTENTION DEFICIT/HYPERACTIVITY DISORDER
     Dosage: 18 MG TABLET DAILY PO
     Route: 048
     Dates: start: 20110927, end: 20111001

REACTIONS (3)
  - DISTURBANCE IN ATTENTION [None]
  - PRODUCT SUBSTITUTION ISSUE [None]
  - ABNORMAL BEHAVIOUR [None]
